FAERS Safety Report 11976515 (Version 2)
Quarter: 2016Q1

REPORT INFORMATION
  Report Type: Spontaneous
  Country: JP (occurrence: JP)
  Receive Date: 20160129
  Receipt Date: 20160205
  Transmission Date: 20160526
  Serious: Yes (Death)
  Sender: FDA-Public Use
  Company Number: JP-NOVOPROD-429770

PATIENT
  Age: 59 Year
  Sex: Female
  Weight: 52 kg

DRUGS (7)
  1. HUMALOG [Suspect]
     Active Substance: INSULIN LISPRO
     Indication: TYPE 1 DIABETES MELLITUS
     Dosage: 20 U, QD(4-6-10U/DAY)
     Route: 058
     Dates: start: 20130702
  2. HUMALOG [Suspect]
     Active Substance: INSULIN LISPRO
     Dosage: 15 U, QD (3-4-8)
     Route: 058
     Dates: start: 20140711, end: 20140731
  3. JUVELA                             /00110502/ [Concomitant]
     Indication: DIABETIC NEUROPATHY
     Dosage: 200 MG
     Route: 048
     Dates: start: 201309, end: 20140731
  4. METHYCOBAL [Concomitant]
     Active Substance: METHYLCOBALAMIN
     Indication: DIABETIC NEUROPATHY
     Dosage: 1500 MG
     Route: 048
     Dates: start: 201311, end: 20140731
  5. TRESIBA CHU FLEXTOUCH [Suspect]
     Active Substance: INSULIN DEGLUDEC
     Indication: TYPE 1 DIABETES MELLITUS
     Dosage: 20 U, QD (IN EVENING)
     Route: 058
     Dates: start: 20140513, end: 20140731
  6. LYRICA [Concomitant]
     Active Substance: PREGABALIN
     Indication: DIABETIC NEUROPATHY
     Dosage: 300 MG
     Route: 048
     Dates: start: 20130702, end: 20140731
  7. HUMALOG [Suspect]
     Active Substance: INSULIN LISPRO
     Dosage: 17 U, QD (3-6-8)
     Route: 058
     Dates: start: 20140608

REACTIONS (3)
  - Drowning [Fatal]
  - Hypoglycaemia [Recovered/Resolved]
  - Hypoglycaemia [Recovered/Resolved]

NARRATIVE: CASE EVENT DATE: 20140606
